FAERS Safety Report 8334013-4 (Version None)
Quarter: 2012Q2

REPORT INFORMATION
  Report Type: 
  Country: None (occurrence: None)
  Receive Date: 20120503
  Receipt Date: 20120426
  Transmission Date: 20120825
  Serious: Yes (Hospitalization)
  Sender: FDA-Public Use
  Company Number: IT-ROCHE-1063346

PATIENT
  Sex: Male

DRUGS (3)
  1. AVASTIN [Suspect]
     Indication: COLON CANCER
     Dosage: THERAPY END DATE: 21/MAR/2012
     Route: 042
     Dates: start: 20120321
  2. APROVEL [Concomitant]
     Route: 048
  3. LANSOPRAZOLE [Concomitant]
     Dosage: DRUG NAME REPORTED AS LANSOPRAZOLO 30
     Route: 048

REACTIONS (4)
  - VOMITING [None]
  - BLOOD CREATINE INCREASED [None]
  - DIARRHOEA [None]
  - DEHYDRATION [None]
